FAERS Safety Report 11138827 (Version 55)
Quarter: 2023Q2

REPORT INFORMATION
  Report Type: Other
  Country: CA (occurrence: None)
  Receive Date: 20150527
  Receipt Date: 20230523
  Transmission Date: 20230721
  Serious: Yes (Hospitalization, Other)
  Sender: FDA-Public Use
  Company Number: CA-ROCHE-1449382

PATIENT
  Age: 73 Year
  Sex: Male
  Weight: 93 kg

DRUGS (44)
  1. RITUXAN [Suspect]
     Active Substance: RITUXIMAB
     Indication: Rheumatoid arthritis
     Route: 042
     Dates: start: 20140812, end: 20200228
  2. RITUXAN [Suspect]
     Active Substance: RITUXIMAB
     Route: 042
     Dates: start: 20201015
  3. RITUXAN [Suspect]
     Active Substance: RITUXIMAB
     Route: 042
     Dates: start: 202001
  4. RITUXAN [Suspect]
     Active Substance: RITUXIMAB
     Route: 042
     Dates: start: 20200228
  5. PRAMIPEXOLE [Suspect]
     Active Substance: PRAMIPEXOLE
     Indication: Hypertension
     Route: 065
  6. DIPHENHYDRAMINE HYDROCHLORIDE [Concomitant]
     Active Substance: DIPHENHYDRAMINE HYDROCHLORIDE
     Indication: Premedication
     Route: 048
     Dates: start: 20140812
  7. ACETAMINOPHEN [Concomitant]
     Active Substance: ACETAMINOPHEN
     Indication: Premedication
     Route: 048
     Dates: start: 20140812
  8. METHYLPREDNISOLONE [Concomitant]
     Active Substance: METHYLPREDNISOLONE
     Indication: Premedication
     Route: 042
     Dates: start: 20140812
  9. DILTIAZEM [Concomitant]
     Active Substance: DILTIAZEM
     Indication: Product used for unknown indication
  10. FLECAINIDE [Concomitant]
     Active Substance: FLECAINIDE
     Indication: Product used for unknown indication
  11. RAMIPRIL [Concomitant]
     Active Substance: RAMIPRIL
     Indication: Product used for unknown indication
     Route: 048
  12. WARFARIN [Concomitant]
     Active Substance: WARFARIN
     Indication: Product used for unknown indication
     Dosage: BEDTIME
  13. PANTOPRAZOLE [Concomitant]
     Active Substance: PANTOPRAZOLE
     Indication: Product used for unknown indication
  14. PREGABALIN [Concomitant]
     Active Substance: PREGABALIN
     Indication: Product used for unknown indication
  15. TYLENOL [Concomitant]
     Active Substance: ACETAMINOPHEN
     Indication: Premedication
     Route: 048
     Dates: start: 20140812
  16. TYLENOL [Concomitant]
     Active Substance: ACETAMINOPHEN
     Indication: Premedication
  17. MORPHINE SULFATE [Concomitant]
     Active Substance: MORPHINE SULFATE
     Indication: Product used for unknown indication
  18. CRESTOR [Concomitant]
     Active Substance: ROSUVASTATIN CALCIUM
     Indication: Product used for unknown indication
  19. OXAZEPAM [Concomitant]
     Active Substance: OXAZEPAM
     Indication: Product used for unknown indication
     Dosage: BEDTIME
     Route: 048
  20. FOLIC ACID [Concomitant]
     Active Substance: FOLIC ACID
     Indication: Product used for unknown indication
  21. PRED MILD [Concomitant]
     Active Substance: PREDNISOLONE ACETATE
     Indication: Product used for unknown indication
     Route: 047
  22. FLEXERIL [Concomitant]
     Active Substance: CYCLOBENZAPRINE HYDROCHLORIDE
  23. DIGOXIN [Concomitant]
     Active Substance: DIGOXIN
  24. FENTANYL [Concomitant]
     Active Substance: FENTANYL
  25. CYCLOBENZAPRINE [Concomitant]
     Active Substance: CYCLOBENZAPRINE
     Indication: Product used for unknown indication
  26. TRAZODONE [Concomitant]
     Active Substance: TRAZODONE HYDROCHLORIDE
     Indication: Product used for unknown indication
  27. HYDROMORPHONE [Concomitant]
     Active Substance: HYDROMORPHONE
     Indication: Product used for unknown indication
  28. MORPHINE [Concomitant]
     Active Substance: MORPHINE
     Indication: Product used for unknown indication
  29. DIPHENHYDRAMINE HYDROCHLORIDE [Concomitant]
     Active Substance: DIPHENHYDRAMINE HYDROCHLORIDE
     Indication: Premedication
     Route: 048
     Dates: start: 20140812
  30. ACETAMINOPHEN [Concomitant]
     Active Substance: ACETAMINOPHEN
     Indication: Premedication
     Route: 048
     Dates: start: 20140812
  31. METHYLPREDNISOLONE [Concomitant]
     Active Substance: METHYLPREDNISOLONE
     Indication: Premedication
     Route: 042
     Dates: start: 20170812
  32. ROSUVASTATIN [Concomitant]
     Active Substance: ROSUVASTATIN
     Indication: Product used for unknown indication
     Route: 048
  33. CARBOXYMETHYLCELLULOSE SODIUM\GLYCERIN [Concomitant]
     Active Substance: CARBOXYMETHYLCELLULOSE SODIUM\GLYCERIN
     Indication: Product used for unknown indication
     Route: 047
  34. LOTEMAX [Concomitant]
     Active Substance: LOTEPREDNOL ETABONATE
     Indication: Product used for unknown indication
     Dosage: ONGOING,1 GTT DROP(S),ONE DROP EACH EYE AT BEDTIME
     Route: 047
  35. BENADRYL [Concomitant]
     Active Substance: DIPHENHYDRAMINE HYDROCHLORIDE
     Indication: Premedication
     Route: 048
     Dates: start: 20140812
  36. SOLU-MEDROL [Concomitant]
     Active Substance: METHYLPREDNISOLONE SODIUM SUCCINATE
     Indication: Premedication
     Route: 042
     Dates: start: 20140814
  37. SULFATRIM [Concomitant]
     Active Substance: SULFAMETHOXAZOLE\TRIMETHOPRIM
  38. DUTASTERIDE [Concomitant]
     Active Substance: DUTASTERIDE
     Dosage: 1 CAPSULE AT BEDTIME
  39. EDOXABAN [Concomitant]
     Active Substance: EDOXABAN
  40. FERROUS GLUCONATE [Concomitant]
     Active Substance: FERROUS GLUCONATE
     Indication: Blood iron decreased
     Dosage: 3 AT BEDTIME
  41. PERINDOPRIL ERBUMINE [Concomitant]
     Active Substance: PERINDOPRIL ERBUMINE
     Indication: Hypertension
  42. PRIMIDONE [Concomitant]
     Active Substance: PRIMIDONE
     Dosage: 1/2 TABLET AT BEDTIME
  43. ROPINIROLE [Concomitant]
     Active Substance: ROPINIROLE
     Indication: Restless legs syndrome
  44. TERAZOSIN [Concomitant]
     Active Substance: TERAZOSIN HYDROCHLORIDE
     Indication: Hypertension
     Dosage: AT BED TIME

REACTIONS (64)
  - Gallbladder disorder [Unknown]
  - Arthropathy [Recovering/Resolving]
  - Pancreatitis [Recovered/Resolved]
  - Bone pain [Not Recovered/Not Resolved]
  - Tooth fracture [Not Recovered/Not Resolved]
  - Skin cancer [Recovered/Resolved]
  - Neoplasm malignant [Recovered/Resolved]
  - Localised infection [Not Recovered/Not Resolved]
  - Blood pressure increased [Recovering/Resolving]
  - Osteoarthritis [Not Recovered/Not Resolved]
  - Rotator cuff syndrome [Not Recovered/Not Resolved]
  - Blood glucose increased [Recovering/Resolving]
  - Foot deformity [Not Recovered/Not Resolved]
  - Spinal stenosis [Recovered/Resolved]
  - Infusion related reaction [Unknown]
  - Rash [Not Recovered/Not Resolved]
  - Arthritis [Unknown]
  - Pain [Unknown]
  - Blood blister [Unknown]
  - Weight decreased [Unknown]
  - Arthralgia [Unknown]
  - Joint swelling [Not Recovered/Not Resolved]
  - Decreased activity [Unknown]
  - Hypotension [Unknown]
  - Diarrhoea [Unknown]
  - Flatulence [Unknown]
  - Abdominal distension [Unknown]
  - Blood pressure systolic increased [Unknown]
  - Back pain [Not Recovered/Not Resolved]
  - Pain in extremity [Not Recovered/Not Resolved]
  - Finger deformity [Not Recovered/Not Resolved]
  - Sleep apnoea syndrome [Unknown]
  - Oropharyngeal pain [Recovering/Resolving]
  - Sneezing [Recovering/Resolving]
  - Productive cough [Not Recovered/Not Resolved]
  - Paraesthesia [Not Recovered/Not Resolved]
  - Tremor [Unknown]
  - Dyspnoea [Unknown]
  - Cough [Not Recovered/Not Resolved]
  - Dizziness [Recovering/Resolving]
  - Atrial flutter [Recovered/Resolved]
  - Balance disorder [Recovered/Resolved]
  - Muscle spasms [Not Recovered/Not Resolved]
  - Abdominal discomfort [Unknown]
  - Renal failure [Unknown]
  - Cardiac failure [Unknown]
  - Back disorder [Unknown]
  - Dry eye [Unknown]
  - Sinus disorder [Not Recovered/Not Resolved]
  - Heart rate decreased [Unknown]
  - Diabetic foot [Not Recovered/Not Resolved]
  - Restless legs syndrome [Unknown]
  - Hypertension [Unknown]
  - Off label use [Unknown]
  - Blood pressure fluctuation [Unknown]
  - Blood iron decreased [Unknown]
  - Cholelithiasis [Unknown]
  - Pseudomonas infection [Unknown]
  - Klebsiella infection [Unknown]
  - Rheumatoid arthritis [Unknown]
  - Blood pressure diastolic abnormal [Unknown]
  - Blood pressure diastolic decreased [Unknown]
  - Off label use [Unknown]
  - Oxygen saturation decreased [Unknown]

NARRATIVE: CASE EVENT DATE: 20140812
